FAERS Safety Report 10354692 (Version 1)
Quarter: 2014Q3

REPORT INFORMATION
  Report Type: Spontaneous
  Country: GB (occurrence: GB)
  Receive Date: 20140731
  Receipt Date: 20140731
  Transmission Date: 20150326
  Serious: Yes (Death, Hospitalization)
  Sender: FDA-Public Use
  Company Number: GB-TEVA-496350ISR

PATIENT
  Age: 65 Year
  Sex: Male
  Weight: 90 kg

DRUGS (16)
  1. BISOPROLOL FUMARATE. [Concomitant]
     Active Substance: BISOPROLOL FUMARATE
  2. GLYCERYL TRINITRATE [Concomitant]
     Active Substance: NITROGLYCERIN
  3. DIPROBASE [Concomitant]
     Active Substance: CHLOROCRESOL
  4. SIMVASTATIN. [Concomitant]
     Active Substance: SIMVASTATIN
  5. FLUTICASONE PROPIONATE. [Concomitant]
     Active Substance: FLUTICASONE PROPIONATE
  6. AZITHROMYCIN [Suspect]
     Active Substance: AZITHROMYCIN ANHYDROUS
     Indication: RESPIRATORY TRACT INFECTION
     Route: 048
     Dates: start: 20140630
  7. IVABRADINE [Interacting]
     Active Substance: IVABRADINE
     Route: 048
     Dates: start: 20140630
  8. NICORANDIL [Concomitant]
     Active Substance: NICORANDIL
  9. VENTOLIN [Concomitant]
     Active Substance: ALBUTEROL SULFATE
  10. WARFARIN SODIUM. [Concomitant]
     Active Substance: WARFARIN SODIUM
  11. DOUBLEBASE [Concomitant]
     Active Substance: ISOPROPYL MYRISTATE\PARAFFIN
  12. PERINDOPRIL ERBUMINE. [Concomitant]
     Active Substance: PERINDOPRIL ERBUMINE
  13. SPIRIVA [Concomitant]
     Active Substance: TIOTROPIUM BROMIDE MONOHYDRATE
  14. SPIRONOLACTONE. [Concomitant]
     Active Substance: SPIRONOLACTONE
  15. BUMETANIDE. [Concomitant]
     Active Substance: BUMETANIDE
  16. OMEPRAZOLE. [Concomitant]
     Active Substance: OMEPRAZOLE

REACTIONS (4)
  - Drug interaction [Unknown]
  - Drug dispensing error [Unknown]
  - Ventricular fibrillation [Fatal]
  - Malaise [Not Recovered/Not Resolved]

NARRATIVE: CASE EVENT DATE: 20140630
